FAERS Safety Report 5271591-6 (Version None)
Quarter: 2007Q1

REPORT INFORMATION
  Report Type: 
  Country: None (occurrence: None)
  Receive Date: 20070316
  Receipt Date: 20070309
  Transmission Date: 20070707
  Serious: Yes (Death)
  Sender: FDA-Public Use
  Company Number: 163-21880-06070860

PATIENT
  Age: 60 Year
  Sex: Female

DRUGS (1)
  1. REVLIMID [Suspect]
     Indication: MULTIPLE MYELOMA
     Dosage: 5 MG, 1 IN 1 D, ORAL
     Route: 048
     Dates: start: 20060616, end: 20060712

REACTIONS (5)
  - ABDOMINAL PAIN [None]
  - DISEASE PROGRESSION [None]
  - DYSPNOEA [None]
  - MULTIPLE MYELOMA [None]
  - SWELLING FACE [None]
